FAERS Safety Report 8000992-8 (Version None)
Quarter: 2011Q4

REPORT INFORMATION
  Report Type: 
  Country: None (occurrence: None)
  Receive Date: 20111222
  Receipt Date: 20110216
  Transmission Date: 20120403
  Serious: No
  Sender: FDA-Public Use
  Company Number: US-GLAXOSMITHKLINE-A0913985A

PATIENT
  Sex: Female

DRUGS (4)
  1. DECONGESTANT [Concomitant]
  2. FLONASE [Suspect]
     Indication: SINUSITIS
     Route: 045
     Dates: start: 20101101
  3. HORMONES [Concomitant]
  4. CLARITIN [Concomitant]

REACTIONS (6)
  - PRURITUS [None]
  - PRODUCT QUALITY ISSUE [None]
  - FACIAL PAIN [None]
  - SINUSITIS [None]
  - EYE PRURITUS [None]
  - CONJUNCTIVITIS [None]
